FAERS Safety Report 18732466 (Version 1)
Quarter: 2021Q1

REPORT INFORMATION
  Report Type: Spontaneous
  Country: IT (occurrence: IT)
  Receive Date: 20210113
  Receipt Date: 20210113
  Transmission Date: 20210419
  Serious: Yes (Hospitalization)
  Sender: FDA-Public Use
  Company Number: IT-AUROBINDO-AUR-APL-2021-001305

PATIENT
  Age: 77 Year
  Sex: Female
  Weight: 84 kg

DRUGS (1)
  1. MEROPENEM. [Suspect]
     Active Substance: MEROPENEM
     Indication: CHOLECYSTITIS
     Dosage: 500 MILLIGRAM, ONCE A DAY
     Route: 065

REACTIONS (3)
  - Erythema [Recovered/Resolved]
  - Skin weeping [Recovered/Resolved]
  - Skin exfoliation [Recovered/Resolved]
